FAERS Safety Report 23333662 (Version 1)
Quarter: 2023Q4

REPORT INFORMATION
  Report Type: Spontaneous
  Country: PL (occurrence: PL)
  Receive Date: 20231222
  Receipt Date: 20231222
  Transmission Date: 20240110
  Serious: Yes (Hospitalization, Other)
  Sender: FDA-Public Use
  Company Number: PL-ALLERGAN-2301258US

PATIENT
  Age: 52 Year
  Sex: Male

DRUGS (5)
  1. DEXAMETHASONE [Suspect]
     Active Substance: DEXAMETHASONE
     Indication: Uveitis
     Route: 047
  2. DEXAMETHASONE [Suspect]
     Active Substance: DEXAMETHASONE
     Route: 047
  3. PREDNISONE [Suspect]
     Active Substance: PREDNISONE
     Indication: Uveitis
     Dosage: MAINTENANCE DOSE 10 MG
     Route: 048
  4. DEXAMETHASONE [Suspect]
     Active Substance: DEXAMETHASONE
     Indication: Uveitis
     Dosage: DOSE DESC: INITIAL DOSE OF 6 MG (IN DECREASING DOSES)
     Route: 042
     Dates: start: 2010
  5. TROPICAMIDE [Suspect]
     Active Substance: TROPICAMIDE
     Indication: Uveitis
     Dosage: STRENGHT-1%
     Route: 047

REACTIONS (2)
  - Herpes ophthalmic [Unknown]
  - Cataract [Unknown]

NARRATIVE: CASE EVENT DATE: 20151001
